FAERS Safety Report 4538928-4 (Version None)
Quarter: 2004Q4

REPORT INFORMATION
  Report Type: 
  Country: None (occurrence: None)
  Receive Date: 20041222
  Receipt Date: 20041207
  Transmission Date: 20050328
  Serious: Yes (Other)
  Sender: FDA-Public Use
  Company Number: USA041080995

PATIENT
  Age: 69 Year
  Sex: Female
  Weight: 52 kg

DRUGS (3)
  1. FORTEO [Suspect]
     Indication: OSTEOPOROSIS
     Dates: start: 20040701
  2. DIOVAN [Concomitant]
  3. IBUPROFEN [Concomitant]

REACTIONS (6)
  - BLOOD PRESSURE INCREASED [None]
  - CEREBRAL ATHEROSCLEROSIS [None]
  - CEREBRAL ISCHAEMIA [None]
  - DEAFNESS [None]
  - PHARMACEUTICAL PRODUCT COMPLAINT [None]
  - TRANSIENT ISCHAEMIC ATTACK [None]
